FAERS Safety Report 5928852-4 (Version None)
Quarter: 2008Q4

REPORT INFORMATION
  Report Type: 
  Country: None (occurrence: None)
  Receive Date: 20081024
  Receipt Date: 20081017
  Transmission Date: 20090506
  Serious: Yes (Death, Hospitalization)
  Sender: FDA-Public Use
  Company Number: GB-WYE-G02378508

PATIENT
  Sex: Male

DRUGS (1)
  1. TIGECYCLINE [Suspect]
     Dosage: UNKNOWN

REACTIONS (2)
  - DEATH [None]
  - THROMBOCYTOPENIA [None]
